FAERS Safety Report 21171437 (Version 1)
Quarter: 2022Q3

REPORT INFORMATION
  Report Type: Report from Study
  Country: IT (occurrence: IT)
  Receive Date: 20220804
  Receipt Date: 20220804
  Transmission Date: 20221026
  Serious: Yes (Other)
  Sender: FDA-Public Use
  Company Number: None

PATIENT
  Age: 15 Year
  Sex: Male
  Weight: 69 kg

DRUGS (4)
  1. METHOTREXATE [Suspect]
     Active Substance: METHOTREXATE
     Indication: Non-Hodgkin^s lymphoma
     Dosage: DURATION : 50 DAYS, 9220 MG / DAY ON 05/18/2022?9220 MG / DAY ON 05/31/2022?9625 MG / DAY ON 06/14/2
     Dates: start: 20220511, end: 20220630
  2. METHOTREXATE [Suspect]
     Active Substance: METHOTREXATE
     Dosage: DURATION: 42 DAYS,?12 MG / DAY ON 05/18/2022.?12 MG / DAY ON 01/06/2022.?12 MG / DAY ON 06/15/2022.
     Dates: start: 20220518, end: 20220629
  3. PURINETHOL [Suspect]
     Active Substance: MERCAPTOPURINE
     Indication: Non-Hodgkin^s lymphoma
     Dosage: 37.5 MG (3/4 TABLET) DAILY ALTERNATING WITH 50 MG (ONE TABLET), DURATION: 55 DAYS
     Dates: start: 20220510, end: 20220704
  4. LEUCOVORIN CALCIUM [Concomitant]
     Active Substance: LEUCOVORIN CALCIUM
     Indication: Non-Hodgkin^s lymphoma
     Route: 042
     Dates: start: 20220518, end: 20220702

REACTIONS (9)
  - Leukopenia [Not Recovered/Not Resolved]
  - Hyperbilirubinaemia [Not Recovered/Not Resolved]
  - Nausea [Recovered/Resolved]
  - Genital erythema [Recovered/Resolved]
  - Stomatitis [Recovered/Resolved]
  - Anaemia [Not Recovered/Not Resolved]
  - Headache [Recovered/Resolved]
  - Folliculitis [Recovered/Resolved]
  - Vomiting [Recovered/Resolved]

NARRATIVE: CASE EVENT DATE: 20220519
